FAERS Safety Report 8499514-7 (Version None)
Quarter: 2012Q3

REPORT INFORMATION
  Report Type: 
  Country: None (occurrence: None)
  Receive Date: 20120710
  Receipt Date: 20120702
  Transmission Date: 20120928
  Serious: Yes (Hospitalization, Other)
  Sender: FDA-Public Use
  Company Number: US-JNJFOC-20100806138

PATIENT
  Sex: Male
  Weight: 71.67 kg

DRUGS (7)
  1. LEVAQUIN [Suspect]
     Indication: UPPER RESPIRATORY TRACT INFECTION
     Route: 048
     Dates: start: 20070101
  2. LEVAQUIN [Suspect]
     Route: 048
     Dates: start: 20040101, end: 20061114
  3. LEVAQUIN [Suspect]
     Route: 048
     Dates: start: 20070101
  4. LEVAQUIN [Suspect]
     Indication: INFECTION
     Route: 048
     Dates: start: 20040101, end: 20061114
  5. LEVAQUIN [Suspect]
     Indication: BRONCHITIS
     Route: 048
     Dates: start: 20040101, end: 20061114
  6. LEVAQUIN [Suspect]
     Route: 048
     Dates: start: 20070101
  7. PREDNISONE TAB [Suspect]
     Indication: COUGH
     Route: 065

REACTIONS (5)
  - PAIN IN EXTREMITY [None]
  - TENDON RUPTURE [None]
  - ROTATOR CUFF SYNDROME [None]
  - TENDON DISORDER [None]
  - TENDONITIS [None]
